FAERS Safety Report 5691714-4 (Version None)
Quarter: 2008Q2

REPORT INFORMATION
  Report Type: 
  Country: None (occurrence: None)
  Receive Date: 20080402
  Receipt Date: 20070430
  Transmission Date: 20081010
  Serious: Yes (Death)
  Sender: FDA-Public Use
  Company Number: US-ROCHE-495455

PATIENT
  Sex: Female

DRUGS (1)
  1. XELODA [Suspect]
     Indication: HEPATIC NEOPLASM MALIGNANT
     Route: 065

REACTIONS (5)
  - DEATH [None]
  - EATING DISORDER [None]
  - ILL-DEFINED DISORDER [None]
  - SKIN DISCOLOURATION [None]
  - SKIN EXFOLIATION [None]
